FAERS Safety Report 9352675 (Version 1)
Quarter: 2013Q2

REPORT INFORMATION
  Report Type: Spontaneous
  Country: US (occurrence: US)
  Receive Date: 20130618
  Receipt Date: 20130618
  Transmission Date: 20140414
  Serious: Yes (Hospitalization)
  Sender: FDA-Public Use
  Company Number: US-009507513-1306USA006828

PATIENT
  Sex: Female

DRUGS (1)
  1. TEMODAR [Suspect]
     Indication: ANAPLASTIC ASTROCYTOMA

REACTIONS (4)
  - Toxicity to various agents [Unknown]
  - Hepatitis [Unknown]
  - Blood bilirubin increased [Unknown]
  - Off label use [Unknown]
